FAERS Safety Report 20283184 (Version 1)
Quarter: 2022Q1

REPORT INFORMATION
  Report Type: Spontaneous
  Country: DE (occurrence: DE)
  Receive Date: 20220103
  Receipt Date: 20220103
  Transmission Date: 20220423
  Serious: Yes (Other)
  Sender: FDA-Public Use
  Company Number: DE-Laboratoires BESINS-INTERNATIONAL-2021-14495

PATIENT
  Sex: Female

DRUGS (2)
  1. ESTRADIOL [Suspect]
     Active Substance: ESTRADIOL
     Indication: Hormone replacement therapy
     Dosage: 1 STROKE CONTINUOUS
     Route: 065
     Dates: start: 202102
  2. PROGESTERONE [Suspect]
     Active Substance: PROGESTERONE
     Indication: Hormone replacement therapy
     Dosage: 200 MG 12 DAYS PER TREATMENT CYCLE
     Route: 065
     Dates: start: 202102

REACTIONS (3)
  - Postmenopausal haemorrhage [Unknown]
  - Irritability [Unknown]
  - Mood swings [Unknown]

NARRATIVE: CASE EVENT DATE: 20210101
